FAERS Safety Report 9691213 (Version 2)
Quarter: 2013Q4

REPORT INFORMATION
  Report Type: Spontaneous
  Country: FR (occurrence: FR)
  Receive Date: 20131115
  Receipt Date: 20131126
  Transmission Date: 20140711
  Serious: Yes (Death)
  Sender: FDA-Public Use
  Company Number: FR-B.I. PHARMACEUTICALS,INC./RIDGEFIELD-2013-FF-02713FF

PATIENT
  Age: 100 Year
  Sex: Female

DRUGS (1)
  1. PRADAXA [Suspect]
     Indication: PHLEBITIS
     Route: 048
     Dates: start: 2013, end: 20130722

REACTIONS (3)
  - Haematoma [Fatal]
  - Petechiae [Fatal]
  - Hypotension [Fatal]
